FAERS Safety Report 5136896-8 (Version None)
Quarter: 2006Q4

REPORT INFORMATION
  Report Type: 
  Country: None (occurrence: None)
  Receive Date: 20061023
  Receipt Date: 20061009
  Transmission Date: 20070319
  Serious: Yes (Hospitalization)
  Sender: FDA-Public Use
  Company Number: 2006125771

PATIENT
  Age: 53 Year
  Sex: Female

DRUGS (4)
  1. PREDNISOLONE [Suspect]
     Indication: POLYARTHRITIS
     Dosage: (20 MG), ORAL
     Route: 048
     Dates: start: 20060904, end: 20060910
  2. PREDNISOLONE [Suspect]
     Indication: RASH
     Dosage: (20 MG), ORAL
     Route: 048
     Dates: start: 20060904, end: 20060910
  3. FLUOXETINE [Suspect]
     Indication: DEPRESSION
     Dosage: (40 MG), ORAL
     Route: 048
     Dates: start: 20060731
  4. ACETAMINOPHEN [Concomitant]

REACTIONS (2)
  - POLYARTHRITIS [None]
  - RASH [None]
